FAERS Safety Report 10384407 (Version 1)
Quarter: 2014Q3

REPORT INFORMATION
  Report Type: Spontaneous
  Country: FR (occurrence: FR)
  Receive Date: 20140814
  Receipt Date: 20140814
  Transmission Date: 20150326
  Serious: Yes (Hospitalization)
  Sender: FDA-Public Use
  Company Number: FR-009507513-1408FRA006555

PATIENT
  Age: 82 Year
  Sex: Female

DRUGS (1)
  1. NORSET [Suspect]
     Active Substance: MIRTAZAPINE
     Dosage: UNK
     Route: 048
     Dates: start: 20140520, end: 20140618

REACTIONS (3)
  - Pruritus [Recovered/Resolved]
  - Rash maculo-papular [Recovered/Resolved]
  - Eosinophil count increased [Recovered/Resolved]

NARRATIVE: CASE EVENT DATE: 201406
